FAERS Safety Report 5331958-4 (Version None)
Quarter: 2007Q2

REPORT INFORMATION
  Report Type: 
  Country: None (occurrence: None)
  Receive Date: 20070518
  Receipt Date: 20070511
  Transmission Date: 20071010
  Serious: Yes (Death, Other)
  Sender: FDA-Public Use
  Company Number: 163-20785-07050625

PATIENT

DRUGS (2)
  1. THALOMID [Suspect]
     Indication: MYELOFIBROSIS
     Dosage: 100MG ESCALATING TO 400MG, PER DAY, ORAL
     Route: 048
  2. GLEEVEC [Suspect]
     Indication: MYELOFIBROSIS
     Dosage: 600 MG, PER DAY

REACTIONS (4)
  - DISEASE PROGRESSION [None]
  - NEUROPATHY PERIPHERAL [None]
  - NEUTROPENIA [None]
  - PULMONARY TOXICITY [None]
